FAERS Safety Report 10181216 (Version 1)
Quarter: 2014Q2

REPORT INFORMATION
  Report Type: Spontaneous
  Country: US (occurrence: US)
  Receive Date: 20140519
  Receipt Date: 20140519
  Transmission Date: 20141212
  Serious: No
  Sender: FDA-Public Use
  Company Number: US-AMGEN INC.-USASP2014030299

PATIENT
  Age: 81 Year
  Sex: Female

DRUGS (8)
  1. PROLIA [Suspect]
     Indication: OSTEOPOROSIS POSTMENOPAUSAL
     Dosage: 60 MG, Q6MO
     Route: 065
  2. METOPROLOL [Concomitant]
  3. SYMBICORT [Concomitant]
  4. ASPIRIN [Concomitant]
  5. LIDODERM [Concomitant]
  6. MELOXICAM [Concomitant]
  7. FOLIC ACID [Concomitant]
  8. GABAPENTIN [Concomitant]

REACTIONS (1)
  - Inappropriate schedule of drug administration [Unknown]
